FAERS Safety Report 5123492-1 (Version None)
Quarter: 2006Q4

REPORT INFORMATION
  Report Type: 
  Country: None (occurrence: None)
  Receive Date: 20061009
  Receipt Date: 20060727
  Transmission Date: 20070319
  Serious: Yes (Life-Threatening, Hospitalization)
  Sender: FDA-Public Use
  Company Number: DE-MERCK-0607DEU00207

PATIENT
  Age: 75 Year
  Sex: Male
  Weight: 67 kg

DRUGS (11)
  1. ZETIA [Suspect]
     Indication: HYPERCHOLESTEROLAEMIA
     Route: 048
     Dates: start: 20051215, end: 20060306
  2. PREDNISOLONE [Concomitant]
     Route: 048
     Dates: end: 20060306
  3. ASPIRIN [Concomitant]
     Route: 048
     Dates: end: 20060306
  4. ESOMEPRAZOLE MAGNESIUM [Concomitant]
     Route: 048
     Dates: end: 20060306
  5. CALCIUM CARBONATE AND CHOLECALCIFEROL [Concomitant]
     Route: 048
     Dates: end: 20060306
  6. RAMIPRIL [Concomitant]
     Route: 048
     Dates: end: 20060306
  7. SIMVASTATIN [Concomitant]
     Route: 048
     Dates: end: 20060306
  8. SPIRONOLACTONE [Concomitant]
     Route: 048
     Dates: end: 20060306
  9. FUROSEMIDE [Concomitant]
     Route: 048
     Dates: end: 20060306
  10. CARVEDILOL [Concomitant]
     Route: 048
     Dates: end: 20060306
  11. LEVOTHYROXINE SODIUM [Concomitant]
     Route: 048
     Dates: end: 20060306

REACTIONS (5)
  - HYPOACUSIS [None]
  - IDIOPATHIC THROMBOCYTOPENIC PURPURA [None]
  - LYMPHOCYTE COUNT DECREASED [None]
  - NAUSEA [None]
  - VOMITING [None]
